FAERS Safety Report 23539468 (Version 1)
Quarter: 2024Q1

REPORT INFORMATION
  Report Type: Spontaneous
  Country: US (occurrence: US)
  Receive Date: 20240219
  Receipt Date: 20240219
  Transmission Date: 20240409
  Serious: No
  Sender: FDA-Public Use
  Company Number: US-CTI BIOPHARMA-2024US04425

PATIENT

DRUGS (18)
  1. VONJO [Suspect]
     Active Substance: PACRITINIB
     Indication: Myeloproliferative neoplasm
     Dosage: 200 MG, BID
     Route: 048
  2. AMOXICILLIN [Concomitant]
     Active Substance: AMOXICILLIN
     Dosage: 250 MG
  3. ATORVASTATIN [Concomitant]
     Active Substance: ATORVASTATIN
     Dosage: 10 MG
  4. BUPROPION HYDROCHLORIDE [Concomitant]
     Active Substance: BUPROPION HYDROCHLORIDE
     Dosage: 300 MG
  5. CALCIUM MAGNESIUM [CALCIUM;MAGNESIUM] [Concomitant]
  6. CLINDAMYCIN HYDROCHLORIDE [Concomitant]
     Active Substance: CLINDAMYCIN HYDROCHLORIDE
     Dosage: 75 MG
  7. COMPLETE B [Concomitant]
  8. BIODINE [CEFRADINE] [Concomitant]
  9. DIETARY SUPPLEMENT [Concomitant]
     Active Substance: DIETARY SUPPLEMENT
  10. MAGNESIUM OXIDE [Concomitant]
     Active Substance: MAGNESIUM OXIDE
     Dosage: 500 MG
  11. VITAMINS NOS [Concomitant]
     Active Substance: VITAMINS
  12. IOHEXOL [Concomitant]
     Active Substance: IOHEXOL
     Dosage: 9 MG
  13. LACTOBACILLUS ACID [Concomitant]
  14. SERRA [Concomitant]
  15. VITAMIN C [Concomitant]
     Active Substance: ASCORBIC ACID
  16. VITAMIN D3 [Concomitant]
     Active Substance: CHOLECALCIFEROL
  17. MENAQUINONE 6 [Concomitant]
     Active Substance: MENAQUINONE 6
  18. RETINOL [Concomitant]
     Active Substance: RETINOL
     Dosage: 2400 MICROGRAM

REACTIONS (3)
  - Product dose omission issue [Unknown]
  - Nausea [Unknown]
  - Vomiting [Unknown]
